FAERS Safety Report 7346991-0 (Version None)
Quarter: 2011Q1

REPORT INFORMATION
  Report Type: 
  Country: None (occurrence: None)
  Receive Date: 20110311
  Receipt Date: 20110228
  Transmission Date: 20110831
  Serious: Yes (Other)
  Sender: FDA-Public Use
  Company Number: PHHY2011AU11387

PATIENT
  Sex: Male

DRUGS (6)
  1. NIFEDIPINE [Concomitant]
  2. VALPROATE SODIUM [Concomitant]
     Dosage: 800 MG, BID
  3. DIAZEPAM [Concomitant]
     Dosage: 10 MG, QID
  4. CLOZARIL [Suspect]
     Dosage: 50 MG, BID
  5. CLOZARIL [Suspect]
     Dosage: 50 MG, BID
  6. CLOZARIL [Suspect]
     Dosage: 75 MG, BID

REACTIONS (16)
  - CHEST PAIN [None]
  - WHITE BLOOD CELL COUNT INCREASED [None]
  - HEART RATE INCREASED [None]
  - MUSCULOSKELETAL PAIN [None]
  - VIRAL INFECTION [None]
  - NEUTROPHIL COUNT INCREASED [None]
  - TROPONIN I INCREASED [None]
  - HYPOTENSION [None]
  - HYPOTHERMIA [None]
  - MYOCARDITIS [None]
  - INFLUENZA LIKE ILLNESS [None]
  - MONOCYTE COUNT INCREASED [None]
  - PYREXIA [None]
  - EOSINOPHIL COUNT INCREASED [None]
  - BACK PAIN [None]
  - SINUS TACHYCARDIA [None]
